FAERS Safety Report 10222310 (Version 2)
Quarter: 2014Q3

REPORT INFORMATION
  Report Type: Spontaneous
  Country: PE (occurrence: PE)
  Receive Date: 20140606
  Receipt Date: 20140708
  Transmission Date: 20150326
  Serious: Yes (Other)
  Sender: FDA-Public Use
  Company Number: PE-PFIZER INC-2014154497

PATIENT
  Age: 80 Year
  Sex: Male

DRUGS (2)
  1. NORVASC [Suspect]
     Active Substance: AMLODIPINE BESYLATE
     Indication: HYPERTENSION
     Dosage: 5 MG, 1X/DAY
     Route: 048
     Dates: end: 201401
  2. GLIDIABET [Concomitant]
     Dosage: UNK
     Route: 048

REACTIONS (2)
  - Renal failure chronic [Unknown]
  - Hepatic cirrhosis [Unknown]
